FAERS Safety Report 5386623-4 (Version None)
Quarter: 2007Q3

REPORT INFORMATION
  Report Type: 
  Country: None (occurrence: None)
  Receive Date: 20070713
  Receipt Date: 20070703
  Transmission Date: 20080115
  Serious: Yes (Hospitalization)
  Sender: FDA-Public Use
  Company Number: IT-ELI_LILLY_AND_COMPANY-IT200707001733

PATIENT
  Age: 67 Year
  Sex: Female

DRUGS (2)
  1. FORTEO [Suspect]
     Indication: OSTEOPOROSIS
     Dosage: 20 UG, DAILY (1/D)
     Route: 058
     Dates: start: 20070105, end: 20070601
  2. CARDIRENE [Concomitant]
     Indication: ARTERIOSCLEROSIS
     Dosage: 160 MG, DAILY (1/D)
     Route: 048
     Dates: start: 20060501, end: 20070529

REACTIONS (2)
  - HYPOCHROMIC ANAEMIA [None]
  - HYPOSIDERAEMIA [None]
